FAERS Safety Report 15910014 (Version 1)
Quarter: 2019Q1

REPORT INFORMATION
  Report Type: Spontaneous
  Country: GB (occurrence: GB)
  Receive Date: 20190204
  Receipt Date: 20190204
  Transmission Date: 20190417
  Serious: Yes (Disabling)
  Sender: FDA-Public Use
  Company Number: GB-ANIPHARMA-2019-UK-000021

PATIENT
  Age: 64 Year
  Sex: Female

DRUGS (2)
  1. BETMIGA [Suspect]
     Active Substance: MIRABEGRON
     Dosage: 50 MG DAILY
     Route: 065
     Dates: start: 201508, end: 201811
  2. CANDESARTAN. [Suspect]
     Active Substance: CANDESARTAN
     Indication: BLOOD PRESSURE MEASUREMENT
     Dosage: 8 MG DAILY / 12 MG DAILY
     Route: 048
     Dates: start: 201511

REACTIONS (10)
  - Anxiety [Recovered/Resolved]
  - Balance disorder [Recovering/Resolving]
  - Drug interaction [Recovered/Resolved with Sequelae]
  - Psychiatric symptom [Recovered/Resolved]
  - Head discomfort [Recovering/Resolving]
  - Irritability [Recovered/Resolved]
  - Balance disorder [Recovered/Resolved]
  - Insomnia [Recovered/Resolved]
  - Dizziness [Recovered/Resolved with Sequelae]
  - Feeling abnormal [Recovered/Resolved]

NARRATIVE: CASE EVENT DATE: 2018
